FAERS Safety Report 25154700 (Version 2)
Quarter: 2025Q2

REPORT INFORMATION
  Report Type: Spontaneous
  Country: US (occurrence: US)
  Receive Date: 20250403
  Receipt Date: 20250417
  Transmission Date: 20250717
  Serious: Yes (Hospitalization, Other)
  Sender: TEVA
  Company Number: US-TEVA-VS-3314461

PATIENT
  Sex: Female

DRUGS (8)
  1. METHOTREXATE [Suspect]
     Active Substance: METHOTREXATE
     Indication: Chronic recurrent multifocal osteomyelitis
     Route: 048
  2. ISOTRETINOIN [Suspect]
     Active Substance: ISOTRETINOIN
     Indication: Psoriasis
     Route: 065
     Dates: start: 202004
  3. AZATHIOPRINE [Suspect]
     Active Substance: AZATHIOPRINE
     Indication: Chronic recurrent multifocal osteomyelitis
     Route: 065
  4. APREMILAST [Suspect]
     Active Substance: APREMILAST
     Indication: Psoriasis
     Route: 065
     Dates: start: 2020, end: 2020
  5. APREMILAST [Suspect]
     Active Substance: APREMILAST
     Indication: Psoriasis
     Route: 065
     Dates: start: 2020
  6. INFLIXIMAB [Suspect]
     Active Substance: INFLIXIMAB
     Indication: Chronic recurrent multifocal osteomyelitis
     Route: 042
  7. CLOBETASOL [Suspect]
     Active Substance: CLOBETASOL
     Indication: Psoriasis
     Route: 065
     Dates: start: 202004
  8. ADALIMUMAB [Suspect]
     Active Substance: ADALIMUMAB
     Indication: Chronic recurrent multifocal osteomyelitis
     Route: 058

REACTIONS (10)
  - Staphylococcal bacteraemia [Unknown]
  - Arthritis bacterial [Unknown]
  - Hypertransaminasaemia [Unknown]
  - Myositis [Unknown]
  - Drug ineffective [Unknown]
  - Rebound effect [Unknown]
  - Paradoxical drug reaction [Recovering/Resolving]
  - Drug specific antibody [Unknown]
  - Psoriasis [Recovering/Resolving]
  - Nausea [Recovered/Resolved]

NARRATIVE: CASE EVENT DATE: 20200101
